FAERS Safety Report 6823701-4 (Version None)
Quarter: 2010Q3

REPORT INFORMATION
  Report Type: 
  Country: None (occurrence: None)
  Receive Date: 20100708
  Receipt Date: 20070326
  Transmission Date: 20110219
  Serious: No
  Sender: FDA-Public Use
  Company Number: US-PFIZER INC-2006105373

PATIENT
  Sex: Female
  Weight: 63.5 kg

DRUGS (7)
  1. CHANTIX [Suspect]
     Indication: SMOKING CESSATION THERAPY
     Dates: start: 20060814
  2. NIASPAN [Suspect]
     Indication: BLOOD TRIGLYCERIDES INCREASED
     Dates: start: 20060814
  3. MULTI-VITAMINS [Concomitant]
  4. CALCIUM CARBONATE [Concomitant]
  5. FISH OIL [Concomitant]
  6. ACETYLSALICYLIC ACID [Concomitant]
  7. HYDROCHLOROTHIAZIDE [Concomitant]

REACTIONS (4)
  - FATIGUE [None]
  - MALAISE [None]
  - NAUSEA [None]
  - SEDATION [None]
